FAERS Safety Report 8792329 (Version 1)
Quarter: 2012Q4

REPORT INFORMATION
  Report Type: 
  Country: US (occurrence: US)
  Receive Date: 20120918
  Receipt Date: 20120918
  Transmission Date: 20130627
  Serious: No
  Sender: FDA-Public Use
  Company Number: US-PFIZER INC-2012225956

PATIENT
  Sex: Female

DRUGS (6)
  1. PRISTIQ [Suspect]
     Dosage: 50 mg, UNK
  2. PRISTIQ [Interacting]
     Dosage: 250 mg, UNK
  3. ETODOLAC [Interacting]
     Dosage: UNK
  4. FENTANYL [Interacting]
     Dosage: UNK
  5. SOMA [Interacting]
     Dosage: UNK
  6. CLONAZEPAM [Interacting]
     Dosage: UNK

REACTIONS (2)
  - Drug clearance increased [Unknown]
  - Drug interaction [Unknown]
